FAERS Safety Report 8294996-8 (Version None)
Quarter: 2012Q2

REPORT INFORMATION
  Report Type: 
  Country: None (occurrence: None)
  Receive Date: 20120418
  Receipt Date: 20120410
  Transmission Date: 20120825
  Serious: Yes (Hospitalization)
  Sender: FDA-Public Use
  Company Number: US-ASTRAZENECA-2008UW24532

PATIENT
  Age: 77 Year
  Sex: Male
  Weight: 60.3 kg

DRUGS (10)
  1. NEXIUM [Suspect]
     Route: 048
  2. ATENOLOL [Concomitant]
     Indication: BLOOD PRESSURE ABNORMAL
     Route: 048
  3. PRADAXA [Concomitant]
     Indication: ANTICOAGULANT THERAPY
     Route: 048
  4. DIGOXIN [Concomitant]
     Indication: CARDIOVASCULAR EVENT PROPHYLAXIS
     Route: 048
  5. NEXIUM [Suspect]
     Indication: DIVERTICULITIS
     Route: 048
     Dates: start: 20081015
  6. NEXIUM [Suspect]
     Indication: GASTRITIS
     Route: 048
     Dates: start: 20081015
  7. NEXIUM [Suspect]
     Route: 048
  8. NEXIUM [Suspect]
     Indication: GASTROOESOPHAGEAL REFLUX DISEASE
     Route: 048
     Dates: start: 20081015
  9. ACEON [Concomitant]
  10. NEXIUM [Suspect]
     Route: 048

REACTIONS (3)
  - POLLAKIURIA [None]
  - ATRIAL FIBRILLATION [None]
  - FREQUENT BOWEL MOVEMENTS [None]
